FAERS Safety Report 5218360-0 (Version None)
Quarter: 2007Q1

REPORT INFORMATION
  Report Type: 
  Country: None (occurrence: None)
  Receive Date: 20070123
  Receipt Date: 20070123
  Transmission Date: 20070707
  Serious: Yes (Hospitalization)
  Sender: FDA-Public Use
  Company Number: None

PATIENT
  Sex: Female

DRUGS (2)
  1. DOCETAXEL [Suspect]
     Dosage: IV
     Route: 042
  2. CAPECITABINE [Suspect]
     Dosage: PO
     Route: 048

REACTIONS (3)
  - COUGH [None]
  - DYSPNOEA [None]
  - PYREXIA [None]
